FAERS Safety Report 9511529 (Version 1)
Quarter: 2013Q1

REPORT INFORMATION
  Report Type: Spontaneous
  Country: US (occurrence: None)
  Receive Date: 20130305
  Receipt Date: 20130305
  Transmission Date: 20140127
  Serious: Yes (Other)
  Sender: FDA-Public Use
  Company Number: 163-21880-12051820

PATIENT
  Age: 70 Year
  Sex: Male
  Weight: 77.11 kg

DRUGS (9)
  1. REVLIMID [Suspect]
     Indication: PLASMA CELL MYELOMA
     Dosage: 10 MG, 21 IN 28 D, PO
     Route: 048
     Dates: start: 20120427, end: 20120504
  2. ACYCLOVIR (ACICLOVIR) (UNKNOWN) [Concomitant]
  3. LEXAPRO (ESCITALOPRAM OXALATE) (10 MILLIGRAM, UNKNOWN)? [Concomitant]
  4. MAGNESIUM (MAGNESIUM) (UNKNOWN) [Concomitant]
  5. OMEPRAZOLE (OMEPRAZOLE) (UNKNOWN) [Concomitant]
  6. COUMADIN (WARFARIN SODIUM) (UNKNOWN) [Concomitant]
  7. PACERONE (AMIODARONE HYDROCHLORIDE) (UNKNOWN) [Concomitant]
  8. BUSPAR (BUSPIRONE HYDROCHLORIDE) (UNKNOWN) [Concomitant]
  9. BUMEX (BUMETANIDE) (UNKNOWN) [Concomitant]

REACTIONS (7)
  - Syncope [None]
  - Weight decreased [None]
  - Decreased appetite [None]
  - Dizziness [None]
  - Dehydration [None]
  - Fall [None]
  - Musculoskeletal pain [None]
